FAERS Safety Report 17957635 (Version 1)
Quarter: 2020Q2

REPORT INFORMATION
  Report Type: Spontaneous
  Country: FR (occurrence: FR)
  Receive Date: 20200629
  Receipt Date: 20200629
  Transmission Date: 20200714
  Serious: Yes (Hospitalization)
  Sender: FDA-Public Use
  Company Number: FR-TEVA-2020-FR-1792385

PATIENT
  Age: 94 Year
  Sex: Female
  Weight: 65.5 kg

DRUGS (11)
  1. LEXOMIL ROCHE COMPRIME BAGUETTE, COMPRIM? QUADRIS?CABLE [Suspect]
     Active Substance: BROMAZEPAM
     Indication: DEPRESSION
     Dosage: 6 MG
     Route: 048
     Dates: end: 20200204
  2. ZOLPIDEM [Suspect]
     Active Substance: ZOLPIDEM TARTRATE
     Indication: SLEEP DISORDER
     Dosage: 10 MG
     Route: 048
     Dates: end: 20200204
  3. KARDEGIC [Concomitant]
     Active Substance: ASPIRIN DL-LYSINE
  4. PERINDOPRIL [Concomitant]
     Active Substance: PERINDOPRIL
  5. ALLOPURINOL. [Concomitant]
     Active Substance: ALLOPURINOL
  6. PANTOPRAZOLE [Concomitant]
     Active Substance: PANTOPRAZOLE
  7. LASILIX [Concomitant]
     Active Substance: FUROSEMIDE
  8. MIANSERINE (CHLORHYDRATE DE) [Suspect]
     Active Substance: MIANSERIN HYDROCHLORIDE
     Indication: DEPRESSION
     Dosage: 30 MG
     Route: 048
     Dates: end: 20200213
  9. SPIRONOLACTONE. [Concomitant]
     Active Substance: SPIRONOLACTONE
  10. FENTANYL. [Suspect]
     Active Substance: FENTANYL
     Indication: PAIN
     Route: 062
  11. BETAXOLOL (CHLORHYDRATE DE) [Concomitant]
     Active Substance: BETAXOLOL HYDROCHLORIDE

REACTIONS (3)
  - Urinary retention [Recovered/Resolved]
  - Hallucination, auditory [Recovered/Resolved]
  - Confusional state [Recovered/Resolved]

NARRATIVE: CASE EVENT DATE: 20200204
